FAERS Safety Report 5253764-1 (Version None)
Quarter: 2007Q1

REPORT INFORMATION
  Report Type: 
  Country: None (occurrence: None)
  Receive Date: 20070227
  Receipt Date: 20070220
  Transmission Date: 20070707
  Serious: Yes (Hospitalization, Other)
  Sender: FDA-Public Use
  Company Number: 163-20785-07020196

PATIENT
  Age: 60 Year
  Sex: Male

DRUGS (1)
  1. THALOMID [Suspect]
     Indication: MULTIPLE MYELOMA
     Dosage: 200 MG, DAILY, ORAL
     Route: 048
     Dates: start: 20041025, end: 20070101

REACTIONS (5)
  - ARTHRITIS BACTERIAL [None]
  - CARDIAC VALVE DISEASE [None]
  - DISEASE PROGRESSION [None]
  - INFECTION [None]
  - SUBACUTE ENDOCARDITIS [None]
